FAERS Safety Report 11445083 (Version 1)
Quarter: 2015Q3

REPORT INFORMATION
  Report Type: Spontaneous
  Country: None (occurrence: None)
  Receive Date: 20150901
  Receipt Date: 20150901
  Transmission Date: 20151125
  Serious: Yes (Life-Threatening, Other)
  Sender: FDA-Public Use
  Company Number: None

PATIENT
  Age: 49 Year
  Sex: Female
  Weight: 85.73 kg

DRUGS (2)
  1. MEDROXYPROGESTERONE ACETATE. [Suspect]
     Active Substance: MEDROXYPROGESTERONE ACETATE
     Indication: CONTRACEPTION
     Route: 030
     Dates: start: 20150601, end: 20150831
  2. DAILY VITAMINS [Concomitant]

REACTIONS (2)
  - Quality of life decreased [None]
  - Vaginal haemorrhage [None]

NARRATIVE: CASE EVENT DATE: 20150831
